FAERS Safety Report 8357502-5 (Version None)
Quarter: 2012Q2

REPORT INFORMATION
  Report Type: 
  Country: None (occurrence: None)
  Receive Date: 20120514
  Receipt Date: 20120504
  Transmission Date: 20120825
  Serious: Yes (Other)
  Sender: FDA-Public Use
  Company Number: US-BAYER-2012-041750

PATIENT
  Age: 69 Year
  Sex: Male
  Weight: 77 kg

DRUGS (8)
  1. COREG [Concomitant]
  2. LIPITOR [Concomitant]
  3. MULTI-VITAMIN [Concomitant]
  4. CO Q-10 [Concomitant]
  5. PLAVIX [Concomitant]
  6. ASPIRIN [Suspect]
     Dosage: 325 MG, QD
     Route: 048
     Dates: start: 19870101
  7. FISH OIL [Concomitant]
  8. LISINOPRIL [Concomitant]

REACTIONS (1)
  - THERAPEUTIC RESPONSE UNEXPECTED [None]
